FAERS Safety Report 7277737-2 (Version None)
Quarter: 2011Q1

REPORT INFORMATION
  Report Type: 
  Country: None (occurrence: None)
  Receive Date: 20110131
  Receipt Date: 20110117
  Transmission Date: 20110831
  Serious: Yes (Hospitalization)
  Sender: FDA-Public Use
  Company Number: DSJ-2011-01095

PATIENT
  Age: 72 Year
  Sex: Male

DRUGS (9)
  1. SITAGLIPTIN [Concomitant]
  2. ASPIRIN [Concomitant]
  3. CONTRAST DYE (CONTRAST MEDIA) [Concomitant]
     Indication: PRODUCT USED FOR UNKNOWN INDICATION
     Dates: start: 20100901, end: 20100901
  4. LOVAZA [Concomitant]
  5. SIMVASTATIN [Concomitant]
  6. PROPATYL  NITRATE [Concomitant]
  7. AMLODIPINE BESYLATE AND OLMESARTAN MEDOXOMIL [Suspect]
     Indication: HYPERTENSION
     Dosage: 20/5 MG (1 IN1 D), PER ORAL; 40/10 MG (1 IN 1 D), PER ORAL
     Route: 048
     Dates: start: 20080101, end: 20110101
  8. AMLODIPINE BESYLATE AND OLMESARTAN MEDOXOMIL [Suspect]
     Indication: HYPERTENSION
     Dosage: 20/5 MG (1 IN1 D), PER ORAL; 40/10 MG (1 IN 1 D), PER ORAL
     Route: 048
     Dates: start: 20110101
  9. INSULIN [Concomitant]

REACTIONS (9)
  - DRUG INEFFECTIVE [None]
  - DIZZINESS [None]
  - ARTERIOSCLEROSIS [None]
  - VASCULAR GRAFT [None]
  - CONSTIPATION [None]
  - BLOOD PRESSURE SYSTOLIC INCREASED [None]
  - CAROTID ARTERIOSCLEROSIS [None]
  - CONTRAST MEDIA REACTION [None]
  - INFARCTION [None]
